FAERS Safety Report 26013315 (Version 2)
Quarter: 2025Q4

REPORT INFORMATION
  Report Type: Spontaneous
  Country: JP (occurrence: JP)
  Receive Date: 20251107
  Receipt Date: 20251120
  Transmission Date: 20260117
  Serious: Yes (Death, Other)
  Sender: ALEXION PHARMACEUTICALS
  Company Number: JP-ASTRAZENECA-202511JPN003055JP

PATIENT
  Age: 3 Decade
  Sex: Male

DRUGS (6)
  1. LOKELMA [Suspect]
     Active Substance: SODIUM ZIRCONIUM CYCLOSILICATE
     Indication: Hyperkalaemia
     Dosage: 30 MILLIGRAM, QD
  2. DEXMEDETOMIDINE [Concomitant]
     Active Substance: DEXMEDETOMIDINE
  3. FENTANYL [Concomitant]
     Active Substance: FENTANYL
  4. AMPICILLIN [Concomitant]
     Active Substance: AMPICILLIN
  5. SULBACTAM [Concomitant]
     Active Substance: SULBACTAM
  6. FUROSEMIDE [Concomitant]
     Active Substance: FUROSEMIDE

REACTIONS (5)
  - Respiratory failure [Fatal]
  - Renal impairment [Recovering/Resolving]
  - Hyperkalaemia [Recovering/Resolving]
  - Product residue present [Unknown]
  - Off label use [Unknown]
